FAERS Safety Report 7903042-4 (Version None)
Quarter: 2011Q4

REPORT INFORMATION
  Report Type: 
  Country: None (occurrence: None)
  Receive Date: 20111109
  Receipt Date: 20111101
  Transmission Date: 20120403
  Serious: Yes (Other)
  Sender: FDA-Public Use
  Company Number: NL-UCBSA-044722

PATIENT
  Age: 29 Year
  Sex: Female

DRUGS (5)
  1. KEPPRA [Suspect]
     Indication: EPILEPSY
     Route: 048
     Dates: start: 20040101, end: 20040101
  2. KEPPRA [Suspect]
     Dosage: GRADUALLY DOWN TITRATED, 1 TABLET 250 MG FOR A WHILE AND COMPLETE STOP
     Route: 048
     Dates: end: 20111001
  3. LAMICTAL [Concomitant]
     Indication: EPILEPSY
     Dosage: DOWN TITRATION IN 1 WEEK
     Dates: end: 20101001
  4. KEPPRA [Suspect]
     Route: 048
     Dates: start: 20040101
  5. INSULIN [Concomitant]
     Indication: DIABETES MELLITUS

REACTIONS (8)
  - WEIGHT DECREASED [None]
  - PREGNANCY [None]
  - MATERNAL EXPOSURE DURING PREGNANCY [None]
  - DEPRESSED MOOD [None]
  - DIABETES MELLITUS [None]
  - PANCREATITIS [None]
  - SUICIDAL IDEATION [None]
  - AGGRESSION [None]
